FAERS Safety Report 8940019 (Version 1)
Quarter: 2012Q4

REPORT INFORMATION
  Report Type: 
  Country: US (occurrence: US)
  Receive Date: 20121203
  Receipt Date: 20121203
  Transmission Date: 20130627
  Serious: Yes (Hospitalization)
  Sender: FDA-Public Use
  Company Number: US-MERCK-1211USA012613

PATIENT
  Age: 53 Year
  Sex: Female

DRUGS (4)
  1. JANUVIA [Suspect]
     Indication: DIABETES MELLITUS
     Dosage: 100 mg, UNK
     Route: 048
     Dates: start: 20120813, end: 2012
  2. METFORMIN [Concomitant]
  3. SIMVASTATIN [Concomitant]
  4. FLUOXETINE [Concomitant]

REACTIONS (1)
  - Pancreatitis [Recovering/Resolving]
